FAERS Safety Report 9631729 (Version 4)
Quarter: 2014Q2

REPORT INFORMATION
  Report Type: Spontaneous
  Country: US (occurrence: US)
  Receive Date: 20131018
  Receipt Date: 20140527
  Transmission Date: 20141212
  Serious: Yes (Other)
  Sender: FDA-Public Use
  Company Number: US-BAYER-2013-126406

PATIENT
  Age: 28 Year
  Sex: Female
  Weight: 140 kg

DRUGS (5)
  1. MIRENA [Suspect]
     Indication: CONTRACEPTION
     Dosage: 20 MCG/24HR, CONT
     Route: 015
     Dates: start: 20101129, end: 20130304
  2. MIRENA [Suspect]
     Indication: CONTRACEPTION
  3. NAPROXEN [Concomitant]
     Dosage: UNK UNK, PRN
     Dates: start: 20130228
  4. LORTAB [Concomitant]
     Dosage: UNK UNK, PRN
     Dates: start: 20130228
  5. SINGULAIR [Concomitant]

REACTIONS (7)
  - Uterine perforation [None]
  - Injury [None]
  - Pain [None]
  - Abdominal pain lower [None]
  - Genital haemorrhage [None]
  - Emotional distress [None]
  - Device issue [None]
